FAERS Safety Report 7707295-7 (Version None)
Quarter: 2011Q3

REPORT INFORMATION
  Report Type: 
  Country: None (occurrence: None)
  Receive Date: 20110824
  Receipt Date: 20110822
  Transmission Date: 20111222
  Serious: Yes (Other)
  Sender: FDA-Public Use
  Company Number: PHHY2011FR73899

PATIENT
  Age: 47 Year
  Sex: Female

DRUGS (1)
  1. METHERGINE [Suspect]
     Indication: UTERINE HAEMORRHAGE
     Route: 042

REACTIONS (3)
  - SHOCK [None]
  - CIRCULATORY COLLAPSE [None]
  - PULSE ABSENT [None]
